FAERS Safety Report 4731728-1 (Version None)
Quarter: 2005Q3

REPORT INFORMATION
  Report Type: 
  Country: None (occurrence: None)
  Receive Date: 20050725
  Receipt Date: 20041012
  Transmission Date: 20060218
  Serious: Yes (Disabling)
  Sender: FDA-Public Use
  Company Number: WAES 0306USA00858

PATIENT
  Age: 56 Year
  Sex: Female
  Weight: 120.6568 kg

DRUGS (2)
  1. VIOXX [Suspect]
     Indication: BACK DISORDER
     Dosage: PO
     Route: 048
     Dates: end: 20010917
  2. VIOXX [Suspect]
     Indication: BACK DISORDER
     Dosage: PO
     Route: 048
     Dates: start: 20010928

REACTIONS (25)
  - ADVERSE EVENT [None]
  - ARTHRALGIA [None]
  - BURSITIS [None]
  - CARDIAC FAILURE CONGESTIVE [None]
  - CATARACT [None]
  - CERVIX CARCINOMA [None]
  - CHEST PAIN [None]
  - COUGH [None]
  - DIVERTICULUM [None]
  - DRUG HYPERSENSITIVITY [None]
  - DRUG INEFFECTIVE [None]
  - DRY MOUTH [None]
  - FALL [None]
  - GASTROINTESTINAL HAEMORRHAGE [None]
  - HEART RATE IRREGULAR [None]
  - HYPERTENSION [None]
  - NASAL CONGESTION [None]
  - NASAL SINUS DRAINAGE [None]
  - OBESITY [None]
  - OEDEMA PERIPHERAL [None]
  - OSTEOARTHRITIS [None]
  - RENAL PAIN [None]
  - ROTATOR CUFF SYNDROME [None]
  - URINARY TRACT INFECTION [None]
  - VULVOVAGINITIS [None]
